FAERS Safety Report 16133589 (Version 2)
Quarter: 2021Q1

REPORT INFORMATION
  Report Type: Report from Study
  Country: None (occurrence: US)
  Receive Date: 20190329
  Receipt Date: 20210113
  Transmission Date: 20210419
  Serious: Yes (Hospitalization)
  Sender: FDA-Public Use
  Company Number: US-INSMED, INC.-US-INS-19-00870

PATIENT
  Age: 58 Year
  Sex: Female

DRUGS (1)
  1. ARIKAYCE [Suspect]
     Active Substance: AMIKACIN
     Indication: MYCOBACTERIAL INFECTION
     Route: 055
     Dates: start: 20190130, end: 20200616

REACTIONS (2)
  - Gastrostomy tube site complication [Unknown]
  - Cough [Unknown]

NARRATIVE: CASE EVENT DATE: 20190603
